FAERS Safety Report 6579075-X (Version None)
Quarter: 2010Q1

REPORT INFORMATION
  Report Type: 
  Country: None (occurrence: None)
  Receive Date: 20100212
  Receipt Date: 20100202
  Transmission Date: 20100710
  Serious: Yes (Hospitalization)
  Sender: FDA-Public Use
  Company Number: SE-JNJFOC-20100201605

PATIENT
  Age: 47 Year
  Sex: Male

DRUGS (1)
  1. REMICADE [Suspect]
     Indication: SPONDYLITIS
     Route: 042

REACTIONS (1)
  - HAEMATOMA [None]
